FAERS Safety Report 6327852-2 (Version None)
Quarter: 2009Q3

REPORT INFORMATION
  Report Type: 
  Country: None (occurrence: None)
  Receive Date: 20090824
  Receipt Date: 20090813
  Transmission Date: 20100115
  Serious: Yes (Hospitalization)
  Sender: FDA-Public Use
  Company Number: 2007-02840

PATIENT
  Age: 69 Year
  Sex: Male
  Weight: 72 kg

DRUGS (6)
  1. VELCADE [Suspect]
     Indication: MULTIPLE MYELOMA
     Dosage: 1.30 MG, INTRAVENOUS
     Route: 042
     Dates: start: 20070717, end: 20070813
  2. NORVASC [Concomitant]
  3. ALLOPURINOL [Concomitant]
  4. METHYCOBAL (MECOBALAMIN) [Concomitant]
  5. DIOVAN [Concomitant]
  6. OMEPRAZOLE [Concomitant]

REACTIONS (5)
  - DIARRHOEA [None]
  - HICCUPS [None]
  - NAUSEA [None]
  - PYREXIA [None]
  - VOMITING [None]
